FAERS Safety Report 6668391-9 (Version None)
Quarter: 2010Q2

REPORT INFORMATION
  Report Type: 
  Country: None (occurrence: None)
  Receive Date: 20100406
  Receipt Date: 20100323
  Transmission Date: 20101027
  Serious: Yes (Hospitalization)
  Sender: FDA-Public Use
  Company Number: PHHY2010FR18851

PATIENT
  Sex: Male

DRUGS (13)
  1. CLOZAPINE [Suspect]
     Indication: MENTAL DISORDER
     Dosage: 0.75 DF DAILY
     Dates: end: 20090312
  2. EXELON [Suspect]
     Indication: DEMENTIA
     Dosage: 2 DF/DAY
  3. EXELON [Suspect]
     Dosage: 9.5 MG
     Route: 062
  4. EXELON [Suspect]
     Dosage: 4.6 MG
     Route: 062
  5. SINEMET [Suspect]
     Indication: PARKINSON'S DISEASE
     Dosage: LP 50MG / 200 MG, 2 DF DAILY
  6. SINEMET [Suspect]
     Dosage: 100 MG 1 DFIN THE MORNING AND AT MIDDAY AND 0.5 DF IN THE EVENING.
  7. MODOPAR [Suspect]
     Dosage: 125, 100 MG /25 MG
  8. MODOPAR [Suspect]
     Dosage: 62.5 MG
  9. DIGOXIN [Suspect]
     Indication: CARDIAC DISORDER
     Dosage: 0.25 MG, 1 DF DAILY
     Dates: end: 20090309
  10. ZOLOFT [Concomitant]
     Dosage: 50 MG
  11. KARDEGIC [Concomitant]
  12. INIPOMP [Concomitant]
  13. OMIX [Concomitant]

REACTIONS (14)
  - AGITATION [None]
  - ATRIAL FIBRILLATION [None]
  - BRADYCARDIA [None]
  - C-REACTIVE PROTEIN INCREASED [None]
  - CEREBRAL ATROPHY [None]
  - CONSTIPATION [None]
  - DEPRESSED LEVEL OF CONSCIOUSNESS [None]
  - ELECTROCARDIOGRAM QT PROLONGED [None]
  - FALL [None]
  - INFECTION [None]
  - LUNG DISORDER [None]
  - PULMONARY CONGESTION [None]
  - PYREXIA [None]
  - TREMOR [None]
